FAERS Safety Report 10036267 (Version 3)
Quarter: 2014Q2

REPORT INFORMATION
  Report Type: Report from Study
  Country: GB (occurrence: GB)
  Receive Date: 20140325
  Receipt Date: 20140411
  Transmission Date: 20141212
  Serious: Yes (Hospitalization, Other)
  Sender: FDA-Public Use
  Company Number: GB-CELGENEUS-167-20785-14021365

PATIENT
  Age: 66 Year
  Sex: Female

DRUGS (5)
  1. THALIDOMIDE [Suspect]
     Indication: PLASMA CELL MYELOMA
     Dosage: 200 MILLIGRAM
     Route: 048
     Dates: start: 20131206, end: 20140305
  2. THALIDOMIDE [Suspect]
     Dosage: 50 MILLIGRAM
     Route: 048
  3. DEXAMETHASONE [Suspect]
     Indication: PLASMA CELL MYELOMA
     Dosage: 10 MILLIGRAM
     Route: 048
     Dates: start: 20131206, end: 20140228
  4. DEXAMETHASONE [Suspect]
     Dosage: 10 MILLIGRAM
     Route: 048
  5. CYCLOPHOSPHAMIDE [Suspect]
     Indication: PLASMA CELL MYELOMA
     Dosage: 500 MILLIGRAM
     Route: 048
     Dates: start: 20131206, end: 20140228

REACTIONS (3)
  - Substance-induced psychotic disorder [Recovered/Resolved]
  - Sepsis [Recovering/Resolving]
  - Urinary tract infection [Recovering/Resolving]
